FAERS Safety Report 21073239 (Version 2)
Quarter: 2023Q1

REPORT INFORMATION
  Report Type: Report from Study
  Country: AR (occurrence: AR)
  Receive Date: 20220712
  Receipt Date: 20230315
  Transmission Date: 20230417
  Serious: Yes (Other)
  Sender: FDA-Public Use
  Company Number: AR-ABBVIE-22K-007-4464226-00

PATIENT
  Sex: Female

DRUGS (1)
  1. HUMIRA [Suspect]
     Active Substance: ADALIMUMAB
     Indication: Rheumatoid arthritis
     Route: 058
     Dates: start: 20160401, end: 20220601

REACTIONS (10)
  - Foetal death [Unknown]
  - Live birth [Unknown]
  - Postpartum thrombosis [Unknown]
  - Maternal exposure during pregnancy [Unknown]
  - Anaemia [Unknown]
  - Multiple pregnancy [Unknown]
  - Intentional product misuse [Unknown]
  - Weight increased [Unknown]
  - Urinary tract infection [Unknown]
  - Renal disorder [Unknown]
